FAERS Safety Report 6811033-X (Version None)
Quarter: 2010Q2

REPORT INFORMATION
  Report Type: 
  Country: None (occurrence: None)
  Receive Date: 20100630
  Receipt Date: 20090131
  Transmission Date: 20101027
  Serious: No
  Sender: FDA-Public Use
  Company Number: US-PFIZER INC-2008159854

PATIENT
  Sex: Female
  Weight: 64.9 kg

DRUGS (1)
  1. ESTRING [Suspect]
     Indication: PREMATURE MENOPAUSE
     Dosage: UNK
     Dates: start: 20081101, end: 20081101

REACTIONS (4)
  - DEVICE EXPULSION [None]
  - VAGINAL HAEMORRHAGE [None]
  - VULVOVAGINAL DISCOMFORT [None]
  - VULVOVAGINAL PAIN [None]
